FAERS Safety Report 11394269 (Version 1)
Quarter: 2015Q3

REPORT INFORMATION
  Report Type: Spontaneous
  Country: PT (occurrence: None)
  Receive Date: 20150817
  Receipt Date: 20150817
  Transmission Date: 20151125
  Serious: Yes (Hospitalization)
  Sender: FDA-Public Use
  Company Number: 2015-001619

PATIENT
  Age: 23 Year
  Sex: Male

DRUGS (2)
  1. MESALAZINE (MESALAZINE) [Suspect]
     Active Substance: MESALAMINE
     Indication: COLITIS ULCERATIVE
     Dates: start: 2009
  2. URSODEOXYCHOLIC ACID (URSODEOXYCHOLIC ACID) [Concomitant]
     Active Substance: URSODIOL

REACTIONS (3)
  - Drug hypersensitivity [None]
  - C-reactive protein increased [None]
  - Eosinophilic colitis [None]

NARRATIVE: CASE EVENT DATE: 2014
